FAERS Safety Report 5735793-4 (Version None)
Quarter: 2008Q2

REPORT INFORMATION
  Report Type: 
  Country: None (occurrence: None)
  Receive Date: 20080508
  Receipt Date: 20080508
  Transmission Date: 20081010
  Serious: No
  Sender: FDA-Public Use
  Company Number: None

PATIENT
  Age: 45 Year
  Sex: Female
  Weight: 83.9154 kg

DRUGS (3)
  1. CREST PROHEALTH ORAL RINSE CREST/PROCTOR + GAMBLE [Suspect]
     Indication: DENTAL DISORDER PROPHYLAXIS
     Dosage: 4 TEASPOONS 2 TIMES A DAY PO
     Route: 048
  2. CREST PROHEALTH ORAL RINSE CREST/PROCTOR + GAMBLE [Suspect]
  3. CREST PROHEALTH ORAL RINSE [Concomitant]

REACTIONS (2)
  - PHARMACEUTICAL PRODUCT COMPLAINT [None]
  - TOOTH DISCOLOURATION [None]
